FAERS Safety Report 12265105 (Version 4)
Quarter: 2016Q3

REPORT INFORMATION
  Report Type: Spontaneous
  Country: FR (occurrence: FR)
  Receive Date: 20160413
  Receipt Date: 20160708
  Transmission Date: 20161109
  Serious: Yes (Hospitalization)
  Sender: FDA-Public Use
  Company Number: FR-GLAXOSMITHKLINE-FR2016GSK048393

PATIENT
  Age: 60 Year
  Sex: Female

DRUGS (12)
  1. SOLU-MEDROL [Suspect]
     Active Substance: METHYLPREDNISOLONE SODIUM SUCCINATE
     Indication: NON-SMALL CELL LUNG CANCER METASTATIC
     Dosage: 120 MG, CYC
     Route: 042
     Dates: start: 20151124, end: 20160127
  2. RANIPLEX [Suspect]
     Active Substance: RANITIDINE HYDROCHLORIDE
     Indication: PREMEDICATION
     Dosage: UNK
     Route: 042
     Dates: start: 20151124, end: 20160127
  3. CARBOPLATINE [Suspect]
     Active Substance: CARBOPLATIN
     Indication: NON-SMALL CELL LUNG CANCER METASTATIC
     Dosage: UNK
     Route: 042
     Dates: start: 20151124, end: 20160127
  4. PACLITAXEL. [Suspect]
     Active Substance: PACLITAXEL
     Indication: NON-SMALL CELL LUNG CANCER METASTATIC
     Dosage: UNK
     Route: 042
     Dates: start: 20151124, end: 20160127
  5. ZOPHREN [Suspect]
     Active Substance: ONDANSETRON
     Indication: VOMITING
     Dosage: 8 MG, CYC
     Route: 042
  6. CARBOPLATINE [Suspect]
     Active Substance: CARBOPLATIN
     Dosage: 489 MG, CYC
     Route: 042
     Dates: start: 20160106
  7. CARBOPLATINE [Suspect]
     Active Substance: CARBOPLATIN
     Dosage: 413 MG, CYC
     Route: 042
     Dates: start: 20160127, end: 20160127
  8. CARBOPLATINE [Suspect]
     Active Substance: CARBOPLATIN
     Dosage: 470.5 MG, CYC
     Route: 042
     Dates: start: 20151216
  9. POLARAMINE [Suspect]
     Active Substance: DEXCHLORPHENIRAMINE MALEATE
     Indication: PREMEDICATION
     Dosage: 5 MG, CYC
     Route: 042
     Dates: start: 20151124, end: 20160127
  10. PACLITAXEL. [Suspect]
     Active Substance: PACLITAXEL
     Dosage: 255.5 MG, CYC
     Route: 042
     Dates: start: 20151216
  11. PACLITAXEL. [Suspect]
     Active Substance: PACLITAXEL
     Dosage: 266 MG, CYC
     Route: 042
     Dates: start: 20160127, end: 20160127
  12. PACLITAXEL. [Suspect]
     Active Substance: PACLITAXEL
     Dosage: 255.5 MG, CYC
     Route: 042
     Dates: start: 20160106

REACTIONS (3)
  - Transaminases increased [Recovering/Resolving]
  - Gamma-glutamyltransferase increased [Recovering/Resolving]
  - Pseudolymphoma [Not Recovered/Not Resolved]

NARRATIVE: CASE EVENT DATE: 20160211
